FAERS Safety Report 8781609 (Version 1)
Quarter: 2012Q4

REPORT INFORMATION
  Report Type: 
  Country: JP (occurrence: JP)
  Receive Date: 20120913
  Receipt Date: 20120913
  Transmission Date: 20130627
  Serious: Yes (Other)
  Sender: FDA-Public Use
  Company Number: JP-JNJFOC-20120903876

PATIENT
  Age: 79 Year
  Sex: Female

DRUGS (1)
  1. LISTERINE SOFT MINT [Suspect]
     Indication: PRODUCT USED FOR UNKNOWN INDICATION
     Route: 048
     Dates: start: 20120904

REACTIONS (3)
  - Abdominal pain [Unknown]
  - Nausea [Unknown]
  - Accidental exposure to product [Unknown]
